FAERS Safety Report 17750630 (Version 1)
Quarter: 2020Q2

REPORT INFORMATION
  Report Type: Spontaneous
  Country: US (occurrence: US)
  Receive Date: 20200505
  Receipt Date: 20200505
  Transmission Date: 20200714
  Serious: Yes (Hospitalization)
  Sender: FDA-Public Use
  Company Number: None

PATIENT
  Age: 73 Year
  Sex: Female

DRUGS (1)
  1. AVONEX PEN [Suspect]
     Active Substance: INTERFERON BETA-1A
     Indication: MULTIPLE SCLEROSIS
     Dosage: ?INTRAMUSCULARY?
     Route: 030
     Dates: start: 20160301

REACTIONS (2)
  - Multiple organ dysfunction syndrome [None]
  - Infection [None]

NARRATIVE: CASE EVENT DATE: 20200330
